FAERS Safety Report 7060746-6 (Version None)
Quarter: 2010Q4

REPORT INFORMATION
  Report Type: 
  Country: None (occurrence: None)
  Receive Date: 20101025
  Receipt Date: 20101024
  Transmission Date: 20110411
  Serious: No
  Sender: FDA-Public Use
  Company Number: US-B.I. PHARMACEUTICALS,INC./RIDGEFIELD-2010-BP-11900BP

PATIENT
  Sex: Male

DRUGS (2)
  1. ZANTAC 150 [Suspect]
     Dosage: 150 MG
     Route: 048
  2. RANITIDINE [Suspect]
     Dosage: 300 MG
     Route: 048

REACTIONS (1)
  - NO ADVERSE EVENT [None]
